FAERS Safety Report 9680411 (Version 2)
Quarter: 2013Q4

REPORT INFORMATION
  Report Type: Spontaneous
  Country: GB (occurrence: GB)
  Receive Date: 20131111
  Receipt Date: 20131111
  Transmission Date: 20140711
  Serious: Yes (Other)
  Sender: FDA-Public Use
  Company Number: GB-ACCORD-017526

PATIENT
  Age: 48 Year
  Sex: Female
  Weight: 99 kg

DRUGS (2)
  1. BENDROFLUMETHIAZIDE [Concomitant]
     Indication: HYPERTENSION
     Dosage: ONGOING
     Route: 048
     Dates: start: 20130307
  2. LISINOPRIL [Suspect]
     Indication: HYPERTENSION
     Route: 048
     Dates: start: 20130208, end: 20130319

REACTIONS (2)
  - Episcleritis [Recovered/Resolved]
  - Condition aggravated [Recovered/Resolved]
